FAERS Safety Report 11080998 (Version 1)
Quarter: 2015Q2

REPORT INFORMATION
  Report Type: Report from Study
  Country: US (occurrence: None)
  Receive Date: 20150429
  Receipt Date: 20150429
  Transmission Date: 20150821
  Serious: Yes (Hospitalization)
  Sender: FDA-Public Use
  Company Number: 2014MPI01722

PATIENT
  Age: 39 Year
  Sex: Female
  Weight: 50.8 kg

DRUGS (5)
  1. DACARBAZINE. [Suspect]
     Active Substance: DACARBAZINE
     Indication: HODGKIN^S DISEASE
     Route: 042
     Dates: start: 20141112
  2. DOXORUBICIN [Suspect]
     Active Substance: DOXORUBICIN
     Indication: HODGKIN^S DISEASE
     Route: 042
     Dates: start: 20141112
  3. NEULASTA [Concomitant]
     Active Substance: PEGFILGRASTIM
  4. BRENTUXIMAB VEDOTIN [Suspect]
     Active Substance: BRENTUXIMAB VEDOTIN
     Indication: HODGKIN^S DISEASE
     Route: 042
     Dates: start: 20141112
  5. VINBLASTINE [Suspect]
     Active Substance: VINBLASTINE
     Indication: HODGKIN^S DISEASE
     Route: 042
     Dates: start: 20141112

REACTIONS (8)
  - Hodgkin^s disease [None]
  - Flank pain [None]
  - Febrile neutropenia [None]
  - Anaemia [None]
  - Bile duct obstruction [None]
  - Malignant neoplasm progression [None]
  - Urinary tract infection [None]
  - Clostridium difficile colitis [None]

NARRATIVE: CASE EVENT DATE: 20141218
